FAERS Safety Report 15438982 (Version 2)
Quarter: 2018Q4

REPORT INFORMATION
  Report Type: Spontaneous
  Country: US (occurrence: US)
  Receive Date: 20180928
  Receipt Date: 20181011
  Transmission Date: 20190204
  Serious: Yes (Disabling)
  Sender: FDA-Public Use
  Company Number: US-PFIZER INC-2018345225

PATIENT
  Age: 49 Year
  Sex: Male
  Weight: 143.31 kg

DRUGS (27)
  1. LOPRESSOR [Concomitant]
     Active Substance: METOPROLOL TARTRATE
     Indication: HYPERTENSION
     Dosage: 25MG, TWO TABLETS AT HOUR OF SLEEP
  2. MYCOSTATIN [Concomitant]
     Active Substance: NYSTATIN
     Dosage: 5 ML, 4X/DAY
  3. DELTASONE [PREDNISONE] [Concomitant]
     Dosage: 7.5 MG, DAILY
     Route: 048
  4. ZOVIRAX [Concomitant]
     Active Substance: ACYCLOVIR
     Dosage: 400 MG, DAILY
     Route: 048
  5. NORCO [Concomitant]
     Active Substance: ACETAMINOPHEN\HYDROCODONE BITARTRATE
     Indication: PAIN
     Dosage: [HYDROCODONE 5 MG/ACETAMINOPHEN 325 MG]
     Route: 048
  6. REMERON [Concomitant]
     Active Substance: MIRTAZAPINE
     Indication: DEPRESSION
     Dosage: 15MG, TWO TABLETS AT HOUR OF SLEEP
     Route: 048
  7. CARAFATE [Concomitant]
     Active Substance: SUCRALFATE
     Dosage: 1 G, UNK
     Route: 048
  8. RAPAMUNE [Suspect]
     Active Substance: SIROLIMUS
     Indication: ACUTE MYELOID LEUKAEMIA
     Dosage: 0.5 MG, 1X/DAY
     Route: 048
  9. MEPRON [ATOVAQUONE] [Concomitant]
     Dosage: 750 MG, 2X/DAY
     Route: 048
  10. MICRO-K [Concomitant]
     Active Substance: POTASSIUM CHLORIDE
     Indication: HYPOKALAEMIA
     Dosage: 10 MEQ, DAILY
     Route: 048
  11. AMLODIPINE [Concomitant]
     Active Substance: AMLODIPINE BESYLATE
     Indication: HYPERTENSION
     Dosage: 10 MG, UNK (10MG AT HOUR OF SLEEP)
  12. PROTONIX [PANTOPRAZOLE SODIUM SESQUIHYDRATE] [Concomitant]
     Indication: GASTRIC DISORDER
     Dosage: 40 MG, DAILY
  13. VITAMIN D3 [Concomitant]
     Active Substance: CHOLECALCIFEROL
     Dosage: 1000 IU, DAILY
     Route: 048
  14. CALCIUM WITH MAGNESIUM [Concomitant]
     Indication: BLOOD MAGNESIUM NORMAL
  15. BIOTIN [Concomitant]
     Active Substance: BIOTIN
     Indication: DRY MOUTH
  16. RAPAMUNE [Suspect]
     Active Substance: SIROLIMUS
     Dosage: 10 MG, DAILY
  17. MEPRON [ATOVAQUONE] [Concomitant]
     Dosage: 750 MG, DAILY
     Route: 048
  18. AMOXIL [Concomitant]
     Active Substance: AMOXICILLIN
     Dosage: 200 MG, UNK
  19. NYSTATIN. [Concomitant]
     Active Substance: NYSTATIN
     Indication: STOMATITIS
     Dosage: UNK UNK, AS NEEDED (FOUR TIMES A DAY AS NEEDED)
     Route: 048
  20. RAPAMUNE [Suspect]
     Active Substance: SIROLIMUS
     Indication: GRAFT VERSUS HOST DISEASE
     Dosage: 0.5 MG, DAILY
     Route: 048
  21. RAPAMUNE [Suspect]
     Active Substance: SIROLIMUS
     Indication: GRAFT VERSUS HOST DISEASE
     Dosage: 7.5 MG, DAILY
  22. PROTONIX [PANTOPRAZOLE SODIUM SESQUIHYDRATE] [Concomitant]
     Dosage: 40 MG, 1X/DAY
  23. BIOTIN [Concomitant]
     Active Substance: BIOTIN
     Indication: STOMATITIS
     Dosage: UNK UNK, 4X/DAY
  24. CLARITINE [Concomitant]
     Active Substance: LORATADINE
     Indication: HYPERSENSITIVITY
     Dosage: 10 MG, DAILY, AS NEEDED
     Route: 048
  25. NOXAFIL [Concomitant]
     Active Substance: POSACONAZOLE
     Dosage: 100 MG, 1X/DAY
     Route: 048
  26. CALCIUM WITH MAGNESIUM [Concomitant]
     Indication: CALCIUM IONISED NORMAL
     Dosage: 1 DF, DAILY
  27. VITAMIN D [Concomitant]
     Active Substance: CHOLECALCIFEROL
     Dosage: 3000 IU, DAILY

REACTIONS (6)
  - Vertigo [Recovering/Resolving]
  - Drug ineffective for unapproved indication [Unknown]
  - Condition aggravated [Recovering/Resolving]
  - Rash [Recovering/Resolving]
  - Blindness [Not Recovered/Not Resolved]
  - Gastric disorder [Recovering/Resolving]

NARRATIVE: CASE EVENT DATE: 201807
